FAERS Safety Report 7198320 (Version 2)
Quarter: 2014Q2

REPORT INFORMATION
  Report Type: Spontaneous
  Country: GB (occurrence: None)
  Receive Date: 20091117
  Receipt Date: 20140415
  Transmission Date: 20141212
  Serious: Yes (Hospitalization, Other)
  Sender: FDA-Public Use
  Company Number: AUR-APL-2009-01173

PATIENT
  Age: 45 Year
  Sex: Male

DRUGS (2)
  1. RIBAVIRIN [Suspect]
     Indication: HEPATITIS C
     Dosage: 400MG BID
  2. PEGINTERFERON ALFA-2A [Suspect]
     Indication: HEPATITIS C
     Dosage: 180UG PER WEEK

REACTIONS (10)
  - Sleep disorder [None]
  - Decreased appetite [None]
  - Agitation [None]
  - Heart rate increased [None]
  - Elevated mood [None]
  - Irritability [None]
  - Paranoia [None]
  - Mania [None]
  - Aggression [None]
  - Abnormal behaviour [None]
